FAERS Safety Report 7605664-7 (Version None)
Quarter: 2011Q3

REPORT INFORMATION
  Report Type: 
  Country: None (occurrence: None)
  Receive Date: 20110713
  Receipt Date: 20110705
  Transmission Date: 20111222
  Serious: Yes (Life-Threatening, Hospitalization)
  Sender: FDA-Public Use
  Company Number: FR-SANOFI-AVENTIS-2011SA042420

PATIENT
  Age: 66 Year
  Sex: Female

DRUGS (8)
  1. ACTONEL [Concomitant]
     Route: 065
     Dates: start: 20030101
  2. ESOMEPRAZOLE MAGNESIUM [Concomitant]
     Route: 065
     Dates: start: 20080101
  3. ARAVA [Suspect]
     Indication: RHEUMATOID ARTHRITIS
     Route: 048
     Dates: start: 20011001, end: 20110409
  4. ENBREL [Suspect]
     Indication: RHEUMATOID ARTHRITIS
     Route: 058
     Dates: start: 20091001, end: 20110409
  5. ACETAMINOPHEN [Concomitant]
     Route: 065
  6. NAPROXEN [Concomitant]
     Route: 065
  7. PREDNISONE [Concomitant]
     Route: 065
  8. CALCIUM CARBONATE [Concomitant]
     Route: 065

REACTIONS (1)
  - GLIOBLASTOMA [None]
